FAERS Safety Report 11658648 (Version 1)
Quarter: 2015Q4

REPORT INFORMATION
  Report Type: Report from Study
  Country: US (occurrence: US)
  Receive Date: 20151026
  Receipt Date: 20151026
  Transmission Date: 20160304
  Serious: Yes (Other)
  Sender: FDA-Public Use
  Company Number: PHEH2015US020839

PATIENT
  Sex: Female

DRUGS (4)
  1. GILENYA [Suspect]
     Active Substance: FINGOLIMOD HYDROCHLORIDE
     Indication: MULTIPLE SCLEROSIS
     Dosage: 0.5 MG, QD
     Route: 048
     Dates: start: 20130220
  2. CELEXA [Concomitant]
     Active Substance: CITALOPRAM HYDROBROMIDE
     Indication: PRODUCT USED FOR UNKNOWN INDICATION
     Route: 065
  3. INDERAL [Concomitant]
     Active Substance: PROPRANOLOL HYDROCHLORIDE
     Indication: PRODUCT USED FOR UNKNOWN INDICATION
     Route: 065
  4. NEURONTIN [Concomitant]
     Active Substance: GABAPENTIN
     Indication: PRODUCT USED FOR UNKNOWN INDICATION
     Route: 065

REACTIONS (21)
  - Urinary retention [Unknown]
  - Balance disorder [Unknown]
  - Dehydration [Unknown]
  - Bladder dysfunction [Unknown]
  - Pollakiuria [Unknown]
  - Neuralgia [Unknown]
  - Spondylolisthesis [Unknown]
  - Blood thyroid stimulating hormone increased [Unknown]
  - Multiple sclerosis [Unknown]
  - Sleep disorder [Unknown]
  - Dysphagia [Unknown]
  - Urinary incontinence [Unknown]
  - Radius fracture [Unknown]
  - Tremor [Unknown]
  - Pain in extremity [Unknown]
  - Depression [Unknown]
  - Fatigue [Unknown]
  - Vitamin D deficiency [Unknown]
  - Micturition urgency [Unknown]
  - Burning sensation [Unknown]
  - Restless legs syndrome [Not Recovered/Not Resolved]
